FAERS Safety Report 21279113 (Version 1)
Quarter: 2022Q3

REPORT INFORMATION
  Report Type: Report from Study
  Country: US (occurrence: US)
  Receive Date: 20220901
  Receipt Date: 20220901
  Transmission Date: 20221026
  Serious: Yes (Hospitalization)
  Sender: FDA-Public Use
  Company Number: US-EXELIXIS-XL18422055411

PATIENT

DRUGS (7)
  1. CABOZANTINIB [Suspect]
     Active Substance: CABOZANTINIB
     Indication: Pleomorphic malignant fibrous histiocytoma
     Dosage: 40 MG, QD
     Route: 048
     Dates: start: 20220804
  2. NIVOLUMAB [Suspect]
     Active Substance: NIVOLUMAB
     Indication: Pleomorphic malignant fibrous histiocytoma
     Dosage: 10 MG/ML (3 MG/KG, Q3WEEKS)
     Route: 042
     Dates: start: 20220804
  3. IPILIMUMAB [Suspect]
     Active Substance: IPILIMUMAB
     Indication: Pleomorphic malignant fibrous histiocytoma
     Dosage: 200MG/40ML (1 MG/KG, Q3WEEKS)
     Route: 042
     Dates: start: 20220804
  4. VITAMIN D3 [Concomitant]
     Active Substance: CHOLECALCIFEROL
  5. EMLA [Concomitant]
     Active Substance: LIDOCAINE\PRILOCAINE
  6. MS CONTIN [Concomitant]
     Active Substance: MORPHINE SULFATE
  7. ROXICODONE [Concomitant]
     Active Substance: OXYCODONE HYDROCHLORIDE

REACTIONS (1)
  - Febrile neutropenia [Recovering/Resolving]

NARRATIVE: CASE EVENT DATE: 20220828
